FAERS Safety Report 16750358 (Version 2)
Quarter: 2019Q3

REPORT INFORMATION
  Report Type: Spontaneous
  Country: US (occurrence: US)
  Receive Date: 20190828
  Receipt Date: 20190930
  Transmission Date: 20191005
  Serious: No
  Sender: FDA-Public Use
  Company Number: US-PFIZER INC-2019367597

PATIENT
  Age: 36 Year
  Sex: Male

DRUGS (3)
  1. PERPHENAZINE. [Concomitant]
     Active Substance: PERPHENAZINE
     Indication: SCHIZOPHRENIA
     Dosage: 4 MG, 1X/DAY (ONE BEFORE BED)
  2. VENLAFAXINE [Concomitant]
     Active Substance: VENLAFAXINE HYDROCHLORIDE
     Indication: DEPRESSION
     Dosage: 37.5 MG, 1X/DAY (ONE AT BED TIME)
  3. DILANTIN [Suspect]
     Active Substance: PHENYTOIN
     Indication: SEIZURE
     Dosage: 600 MG, DAILY(100 MG, 6 TIMES A DAY)
     Route: 048

REACTIONS (1)
  - No adverse event [Unknown]
